FAERS Safety Report 6354638-5 (Version None)
Quarter: 2009Q3

REPORT INFORMATION
  Report Type: 
  Country: None (occurrence: None)
  Receive Date: 20090914
  Receipt Date: 20090903
  Transmission Date: 20100115
  Serious: Yes (Death, Hospitalization, Other)
  Sender: FDA-Public Use
  Company Number: US-ELI_LILLY_AND_COMPANY-US200907003492

PATIENT
  Sex: Female

DRUGS (7)
  1. ZYPREXA [Suspect]
     Indication: BIPOLAR DISORDER
  2. LITHIUM CARBONATE [Concomitant]
  3. SEROQUEL [Concomitant]
  4. PROGRAF [Concomitant]
  5. CYCLOSPORINE [Concomitant]
  6. VALTREX [Concomitant]
  7. DIFLUCAN [Concomitant]

REACTIONS (3)
  - APLASTIC ANAEMIA [None]
  - DEATH [None]
  - PANCYTOPENIA [None]
